FAERS Safety Report 23192394 (Version 1)
Quarter: 2023Q4

REPORT INFORMATION
  Report Type: Report from Study
  Country: BR (occurrence: BR)
  Receive Date: 20231116
  Receipt Date: 20231116
  Transmission Date: 20240110
  Serious: Yes (Disabling)
  Sender: FDA-Public Use
  Company Number: BR-TAKEDA-2023TUS110900

PATIENT
  Sex: Female

DRUGS (1)
  1. HEMO-8R [Suspect]
     Active Substance: ANTIHEMOPHILIC FACTOR, HUMAN RECOMBINANT
     Indication: Factor VIII deficiency
     Dosage: 2050 INTERNATIONAL UNIT, 3/WEEK
     Route: 042
     Dates: start: 20210702

REACTIONS (1)
  - Gait disturbance [Unknown]
